FAERS Safety Report 7135536-6 (Version None)
Quarter: 2010Q4

REPORT INFORMATION
  Report Type: 
  Country: None (occurrence: None)
  Receive Date: 20101203
  Receipt Date: 20101122
  Transmission Date: 20110411
  Serious: Yes (Hospitalization, Other)
  Sender: FDA-Public Use
  Company Number: US-ELI_LILLY_AND_COMPANY-US201009003284

PATIENT
  Sex: Female
  Weight: 58.05 kg

DRUGS (3)
  1. EVISTA [Suspect]
     Indication: OSTEOPENIA
     Dosage: 60 MG, DAILY (1/D)
  2. ACTONEL [Concomitant]
  3. ASPIRIN [Concomitant]

REACTIONS (2)
  - DISCOMFORT [None]
  - OVARIAN EPITHELIAL CANCER [None]
